FAERS Safety Report 4546895-2 (Version None)
Quarter: 2005Q1

REPORT INFORMATION
  Report Type: 
  Country: None (occurrence: None)
  Receive Date: 20050106
  Receipt Date: 20041029
  Transmission Date: 20050727
  Serious: Yes (Disabling)
  Sender: FDA-Public Use
  Company Number: US-MERCK-0411USA00073

PATIENT
  Age: 71 Year
  Sex: Female
  Weight: 61 kg

DRUGS (4)
  1. VIOXX [Suspect]
     Indication: OSTEOARTHRITIS
     Route: 048
     Dates: start: 20040819, end: 20040912
  2. VIOXX [Suspect]
     Indication: ARTHRALGIA
     Route: 048
     Dates: start: 20040819, end: 20040912
  3. CATAPRES [Concomitant]
     Route: 065
  4. LORTAB [Concomitant]
     Indication: PAIN
     Route: 048
     Dates: start: 20040730

REACTIONS (7)
  - FACE OEDEMA [None]
  - FEELING ABNORMAL [None]
  - MEDICATION ERROR [None]
  - OEDEMA MOUTH [None]
  - POLLAKIURIA [None]
  - SWELLING [None]
  - TONGUE OEDEMA [None]
